FAERS Safety Report 9271309 (Version 1)
Quarter: 2013Q2

REPORT INFORMATION
  Report Type: Spontaneous
  Country: GB (occurrence: GB)
  Receive Date: 20130506
  Receipt Date: 20130506
  Transmission Date: 20140414
  Serious: Yes (Other)
  Sender: FDA-Public Use
  Company Number: GB-ELI_LILLY_AND_COMPANY-GB201304007508

PATIENT
  Sex: 0

DRUGS (10)
  1. OLANZAPINE [Suspect]
     Dosage: 1 DF, UNKNOWN
     Route: 064
  2. OLANZAPINE [Suspect]
     Dosage: 1 DF, UNKNOWN
     Route: 064
  3. FLUOXETINE [Suspect]
     Dosage: 1 DF, UNKNOWN
     Route: 064
  4. FLUOXETINE [Suspect]
     Dosage: 1 DF, UNKNOWN
     Route: 064
  5. METHADONE [Concomitant]
     Indication: DRUG DEPENDENCE
     Dosage: 1 DF, UNKNOWN
     Route: 064
  6. METHADONE [Concomitant]
     Indication: DRUG DEPENDENCE
     Dosage: 1 DF, UNKNOWN
     Route: 064
  7. SUBUTEX [Concomitant]
     Indication: DRUG DEPENDENCE
     Dosage: 8 MG, QD
     Route: 064
     Dates: start: 20050919, end: 20060113
  8. SUBUTEX [Concomitant]
     Indication: DRUG DEPENDENCE
     Dosage: 8 MG, QD
     Route: 064
     Dates: start: 20050919, end: 20060113
  9. ZOPICLONE [Concomitant]
     Dosage: 1 DF, UNKNOWN
     Route: 064
  10. ZOPICLONE [Concomitant]
     Dosage: 1 DF, UNKNOWN
     Route: 064

REACTIONS (3)
  - Drug withdrawal syndrome neonatal [Unknown]
  - Foetal exposure during pregnancy [Recovered/Resolved]
  - Drug withdrawal syndrome [None]
